FAERS Safety Report 21466023 (Version 3)
Quarter: 2022Q4

REPORT INFORMATION
  Report Type: Report from Study
  Country: FR (occurrence: FR)
  Receive Date: 20221017
  Receipt Date: 20221125
  Transmission Date: 20230113
  Serious: Yes (Hospitalization, Other)
  Sender: FDA-Public Use
  Company Number: FR-AMGEN-FRACT2022173675

PATIENT
  Age: 67 Year
  Sex: Male
  Weight: 97 kg

DRUGS (7)
  1. PANITUMUMAB [Suspect]
     Active Substance: PANITUMUMAB
     Indication: Colorectal cancer metastatic
     Dosage: 468 MILLIGRAM, EVERY 1 CYCLE (CUMULATIVE DOSE WAS 954 MG)
     Route: 040
     Dates: start: 20220829
  2. OXALIPLATIN [Suspect]
     Active Substance: OXALIPLATIN
     Indication: Colorectal cancer metastatic
     Dosage: 160 MILLIGRAM, EVERY 1 CYCLE (CUMULATIVE DOSE WAS 325 MG)
     Route: 040
     Dates: start: 20220829, end: 20220919
  3. IRINOTECAN [Suspect]
     Active Substance: IRINOTECAN
     Indication: Colorectal cancer metastatic
     Dosage: 230 MILLIGRAM; CYCLE 2; CUMULATIVE DOSE-520 MG
     Route: 040
     Dates: start: 20220829, end: 20220919
  4. FLUOROURACIL [Suspect]
     Active Substance: FLUOROURACIL
     Indication: Colorectal cancer metastatic
     Dosage: 750 MILLIGRAM; BOLUS;CYCLE 2; CUMULATIVE DOSE-1525 MG
     Route: 040
     Dates: start: 20220829, end: 20220919
  5. FLUOROURACIL [Suspect]
     Active Substance: FLUOROURACIL
     Dosage: 4550 MILLIGRAM; CONTINUOUS; CYCLE 2; CUMULATIVE DOSE-9200 MG
     Route: 040
     Dates: start: 20220829, end: 20220919
  6. LEUCOVORIN [Suspect]
     Active Substance: LEUCOVORIN
     Indication: Colorectal cancer metastatic
     Dosage: 378 MILLIGRAM, EVERY 1 CYCLE (CUMULATIVE DOSE WAS 764 MG)
     Route: 040
     Dates: start: 20220829
  7. TRAMADOL HYDROCHLORIDE [Concomitant]
     Active Substance: TRAMADOL HYDROCHLORIDE
     Indication: Pain
     Dosage: 50 MILLIGRAM
     Route: 048
     Dates: start: 2022

REACTIONS (1)
  - Febrile neutropenia [Not Recovered/Not Resolved]

NARRATIVE: CASE EVENT DATE: 20221002
